FAERS Safety Report 10649765 (Version 3)
Quarter: 2015Q3

REPORT INFORMATION
  Report Type: Spontaneous
  Country: US (occurrence: US)
  Receive Date: 20141212
  Receipt Date: 20150908
  Transmission Date: 20151125
  Serious: Yes (Other)
  Sender: FDA-Public Use
  Company Number: US-BAYER-2014-183213

PATIENT
  Age: 23 Year
  Sex: Female
  Weight: 58.96 kg

DRUGS (3)
  1. IBUPROFEN. [Concomitant]
     Active Substance: IBUPROFEN
     Indication: PAIN
  2. MIRENA [Suspect]
     Active Substance: LEVONORGESTREL
     Dosage: 20 MCG/24HR, CONT
     Route: 015
     Dates: start: 20040610, end: 20071003
  3. MIRENA [Suspect]
     Active Substance: LEVONORGESTREL
     Dosage: 20 MCG/24HR, CONT
     Route: 015
     Dates: start: 20040510, end: 20040510

REACTIONS (9)
  - Device difficult to use [None]
  - Pain [None]
  - Uterine perforation [None]
  - Depression [None]
  - Procedural pain [None]
  - Anxiety [None]
  - Injury [None]
  - Emotional distress [None]
  - Fear [None]

NARRATIVE: CASE EVENT DATE: 2004
